FAERS Safety Report 24687002 (Version 1)
Quarter: 2024Q4

REPORT INFORMATION
  Report Type: Spontaneous
  Country: US (occurrence: None)
  Receive Date: 20241130
  Receipt Date: 20241130
  Transmission Date: 20250114
  Serious: Yes (Disabling, Other)
  Sender: Public
  Company Number: None

PATIENT
  Age: 12 Year
  Sex: Male
  Weight: 54 kg

DRUGS (5)
  1. MIRALAX [Suspect]
     Active Substance: POLYETHYLENE GLYCOL 3350
  2. VITAMIN C [Concomitant]
     Active Substance: ASCORBIC ACID
  3. OMEGA 3 [Concomitant]
     Active Substance: CAPSAICIN
  4. NAC [Concomitant]
  5. PROBIOTICS NOS [Concomitant]
     Active Substance: PROBIOTICS NOS

REACTIONS (4)
  - Hallucination [None]
  - Nonspecific reaction [None]
  - Anxiety [None]
  - Fear [None]

NARRATIVE: CASE EVENT DATE: 20241031
